FAERS Safety Report 13620108 (Version 2)
Quarter: 2017Q2

REPORT INFORMATION
  Report Type: Report from Study
  Country: US (occurrence: US)
  Receive Date: 20170607
  Receipt Date: 20170615
  Transmission Date: 20170830
  Serious: Yes (Other)
  Sender: FDA-Public Use
  Company Number: US-AMGEN-USASL2017085003

PATIENT
  Sex: Male

DRUGS (1)
  1. REPATHA [Suspect]
     Active Substance: EVOLOCUMAB
     Indication: TYPE IIA HYPERLIPIDAEMIA
     Dosage: 140 MG, Q2WK
     Route: 065

REACTIONS (4)
  - Injury associated with device [Unknown]
  - Haematuria [Unknown]
  - Wrong technique in product usage process [Unknown]
  - Haematochezia [Unknown]
